FAERS Safety Report 26047109 (Version 1)
Quarter: 2025Q4

REPORT INFORMATION
  Report Type: Spontaneous
  Country: US (occurrence: None)
  Receive Date: 20251114
  Receipt Date: 20251114
  Transmission Date: 20260117
  Serious: Yes (Other)
  Sender: FDA-CTU
  Company Number: None

PATIENT
  Age: 65 Year
  Sex: Female

DRUGS (1)
  1. TYMLOS [Suspect]
     Active Substance: ABALOPARATIDE
     Indication: Osteoporosis
     Dosage: 80 UG MICROGRAM(S) DAILY SUBCUTANEOUS
     Route: 058
     Dates: start: 20250926, end: 20251028

REACTIONS (5)
  - Headache [None]
  - Nausea [None]
  - Vomiting [None]
  - Bone pain [None]
  - Therapy cessation [None]

NARRATIVE: CASE EVENT DATE: 20251028
